FAERS Safety Report 5894498-X (Version None)
Quarter: 2008Q3

REPORT INFORMATION
  Report Type: 
  Country: None (occurrence: None)
  Receive Date: 20080924
  Receipt Date: 20080916
  Transmission Date: 20090109
  Serious: No
  Sender: FDA-Public Use
  Company Number: US-BAYER-200820362NA

PATIENT
  Age: 8 Week

DRUGS (1)
  1. MIRENA [Suspect]

REACTIONS (1)
  - NO ADVERSE EVENT [None]
